FAERS Safety Report 16644539 (Version 3)
Quarter: 2019Q3

REPORT INFORMATION
  Report Type: Report from Study
  Country: US (occurrence: US)
  Receive Date: 20190729
  Receipt Date: 20190920
  Transmission Date: 20191004
  Serious: Yes (Death, Hospitalization, Other)
  Sender: FDA-Public Use
  Company Number: US-TESAROUBC-2019-TSO02375-US

PATIENT
  Age: 53 Year
  Sex: Female

DRUGS (10)
  1. NIRAPARIB [Suspect]
     Active Substance: NIRAPARIB
     Dosage: 200 MG, QPM WITH OUT FOOD
     Route: 048
     Dates: start: 20190624, end: 20190721
  2. ESTRADIOL TRANSDERMAL SYSTEM [Concomitant]
     Active Substance: ESTRADIOL
     Dosage: UNK
  3. SENOKOT [Concomitant]
     Active Substance: SENNOSIDES
  4. RESTORIL [Concomitant]
     Active Substance: TEMAZEPAM
  5. ADVIL (MEFENAMIC ACID) [Concomitant]
     Active Substance: MEFENAMIC ACID
  6. MAGNESIUM [Concomitant]
     Active Substance: MAGNESIUM
  7. TEMAZEPAM. [Concomitant]
     Active Substance: TEMAZEPAM
     Dosage: UNK
  8. CLIMARA [Concomitant]
     Active Substance: ESTRADIOL
  9. TRAMADOL. [Concomitant]
     Active Substance: TRAMADOL
  10. ANALPRAM E [Concomitant]
     Active Substance: HYDROCORTISONE ACETATE\PRAMOXINE HYDROCHLORIDE

REACTIONS (10)
  - Asthenia [Unknown]
  - Weight decreased [Unknown]
  - Eating disorder [Unknown]
  - Death [Fatal]
  - Fatigue [Unknown]
  - Drug intolerance [Unknown]
  - Hot flush [Unknown]
  - Retching [Unknown]
  - Insomnia [Unknown]
  - Nausea [Unknown]

NARRATIVE: CASE EVENT DATE: 201906
